FAERS Safety Report 5162836-1 (Version None)
Quarter: 2006Q4

REPORT INFORMATION
  Report Type: 
  Country: None (occurrence: None)
  Receive Date: 20061201
  Receipt Date: 20010219
  Transmission Date: 20070319
  Serious: Yes (Hospitalization)
  Sender: FDA-Public Use
  Company Number: FR-GLAXOSMITHKLINE-B0099533A

PATIENT
  Sex: Male
  Weight: 2.9 kg

DRUGS (10)
  1. RETROVIR [Suspect]
     Indication: ANTIVIRAL PROPHYLAXIS
  2. RETROVIR [Suspect]
     Indication: HIV INFECTION
     Route: 048
  3. RETROVIR [Suspect]
     Route: 042
  4. NEVIRAPINE [Suspect]
     Indication: ANTIVIRAL PROPHYLAXIS
  5. DIDANOSINE [Suspect]
     Indication: HIV INFECTION
     Route: 048
  6. VIRAMUNE [Suspect]
     Indication: HIV INFECTION
     Route: 048
  7. IRON [Concomitant]
  8. VITAMINS [Concomitant]
  9. ERCEFURYL [Concomitant]
  10. SALBUTAMOL [Concomitant]
     Indication: UTERINE CONTRACTIONS ABNORMAL

REACTIONS (10)
  - ANAEMIA [None]
  - BLOOD KETONE BODY INCREASED [None]
  - BLOOD LACTIC ACID INCREASED [None]
  - HYPERTRIGLYCERIDAEMIA [None]
  - LABORATORY TEST ABNORMAL [None]
  - METABOLIC DISORDER [None]
  - NEUTROPENIA [None]
  - PLAGIOCEPHALY [None]
  - PSYCHOMOTOR SKILLS IMPAIRED [None]
  - SPEECH DISORDER DEVELOPMENTAL [None]
